FAERS Safety Report 7786897-6 (Version None)
Quarter: 2011Q3

REPORT INFORMATION
  Report Type: 
  Country: None (occurrence: None)
  Receive Date: 20110929
  Receipt Date: 20110919
  Transmission Date: 20111222
  Serious: Yes (Other)
  Sender: FDA-Public Use
  Company Number: KR-BRISTOL-MYERS SQUIBB COMPANY-16110918

PATIENT

DRUGS (1)
  1. IFOSFAMIDE [Suspect]
     Dosage: 1DF:2 G/M2 IN 1L OF 5% DEXTROSE IN WATER(LOADING DOSE) TOTAL DOSE:14G/M2

REACTIONS (1)
  - ENCEPHALOPATHY [None]
